FAERS Safety Report 11078963 (Version 1)
Quarter: 2015Q2

REPORT INFORMATION
  Report Type: Report from Study
  Country: GB (occurrence: GB)
  Receive Date: 20150430
  Receipt Date: 20150430
  Transmission Date: 20150821
  Serious: Yes (Hospitalization)
  Sender: FDA-Public Use
  Company Number: GB-ABBVIE-15K-167-1383524-00

PATIENT
  Age: 58 Year
  Sex: Female
  Weight: 47 kg

DRUGS (3)
  1. CALCIUM [Concomitant]
     Active Substance: CALCIUM
     Indication: PRODUCT USED FOR UNKNOWN INDICATION
  2. HUMIRA [Suspect]
     Active Substance: ADALIMUMAB
     Indication: ANKYLOSING SPONDYLITIS
     Route: 058
     Dates: start: 20120403, end: 201309
  3. METHOTREXATE [Suspect]
     Active Substance: METHOTREXATE
     Indication: ANKYLOSING SPONDYLITIS
     Route: 065
     Dates: end: 201309

REACTIONS (5)
  - Gastritis [Unknown]
  - Asthenia [Unknown]
  - Abdominal distension [Unknown]
  - Pain [Unknown]
  - Night sweats [Unknown]

NARRATIVE: CASE EVENT DATE: 20130930
